FAERS Safety Report 4455483-8 (Version None)
Quarter: 2004Q3

REPORT INFORMATION
  Report Type: 
  Country: None (occurrence: None)
  Receive Date: 20040917
  Receipt Date: 20040903
  Transmission Date: 20050211
  Serious: Yes (Hospitalization)
  Sender: FDA-Public Use
  Company Number: 184646

PATIENT
  Age: 60 Year
  Sex: Female
  Weight: 58.9676 kg

DRUGS (13)
  1. AVONEX [Suspect]
     Indication: MULTIPLE SCLEROSIS
     Dosage: 30 MCG QW IM
     Route: 030
     Dates: start: 20010401
  2. AVONEX [Suspect]
     Indication: MULTIPLE SCLEROSIS
     Dosage: 30 MCG QW IM
     Route: 030
  3. VIOXX [Concomitant]
  4. CELEBREX [Concomitant]
  5. ZANAFLEX [Concomitant]
  6. BACLOFEN [Concomitant]
  7. DUIRETIC [Concomitant]
  8. LOTREL [Concomitant]
  9. LIPITOR [Concomitant]
  10. FOSAMAX [Concomitant]
  11. CALCIUM D3 [Concomitant]
  12. NEURONTIN [Concomitant]
  13. AMBIEN [Concomitant]

REACTIONS (7)
  - FALL [None]
  - HEART RATE DECREASED [None]
  - HYPOTENSION [None]
  - INJECTION SITE PAIN [None]
  - INSOMNIA [None]
  - MUSCLE SPASTICITY [None]
  - PELVIC FRACTURE [None]
